FAERS Safety Report 7496052-5 (Version None)
Quarter: 2011Q2

REPORT INFORMATION
  Report Type: 
  Country: None (occurrence: None)
  Receive Date: 20110523
  Receipt Date: 20110512
  Transmission Date: 20111010
  Serious: Yes (Other)
  Sender: FDA-Public Use
  Company Number: JP-JNJFOC-20110412075

PATIENT
  Age: 63 Year
  Sex: Male

DRUGS (5)
  1. LONASEN [Concomitant]
     Route: 048
     Dates: start: 20110412, end: 20110422
  2. INVEGA [Suspect]
     Indication: SCHIZOPHRENIA
     Route: 048
     Dates: start: 20110412, end: 20110422
  3. LONASEN [Concomitant]
     Indication: SCHIZOPHRENIA
     Route: 048
     Dates: end: 20110411
  4. VALPROATE SODIUM [Concomitant]
     Route: 048
     Dates: end: 20110422
  5. SEROQUEL [Concomitant]
     Indication: SCHIZOPHRENIA
     Route: 048
     Dates: end: 20110422

REACTIONS (1)
  - HYPOXIC-ISCHAEMIC ENCEPHALOPATHY [None]
